FAERS Safety Report 7249207-9 (Version None)
Quarter: 2011Q1

REPORT INFORMATION
  Report Type: 
  Country: None (occurrence: None)
  Receive Date: 20110128
  Receipt Date: 20101206
  Transmission Date: 20110831
  Serious: Yes (Other)
  Sender: FDA-Public Use
  Company Number: US-BAYER-2010-002803

PATIENT
  Sex: Female
  Weight: 69.388 kg

DRUGS (2)
  1. NEXIUM [Concomitant]
  2. ASPIRIN [Suspect]
     Indication: BACK PAIN
     Dosage: 81 MG, UNK
     Dates: start: 20100701, end: 20101205

REACTIONS (4)
  - HEADACHE [None]
  - DEAFNESS [None]
  - ABASIA [None]
  - BLOOD PRESSURE INCREASED [None]
